FAERS Safety Report 8246404-0 (Version None)
Quarter: 2012Q1

REPORT INFORMATION
  Report Type: 
  Country: None (occurrence: None)
  Receive Date: 20120330
  Receipt Date: 20120323
  Transmission Date: 20120608
  Serious: Yes (Death)
  Sender: FDA-Public Use
  Company Number: FR-SANOFI-AVENTIS-2012SA020254

PATIENT
  Age: 54 Year
  Sex: Male

DRUGS (9)
  1. ZYRTEC [Concomitant]
  2. LOVENOX [Suspect]
     Indication: THROMBOSIS PROPHYLAXIS
     Route: 058
  3. NEXIUM [Concomitant]
  4. ELOXATIN [Suspect]
     Route: 065
  5. POTASSIUM CHLORIDE [Concomitant]
  6. GLYCEROL/PARAFFIN, LIQUID/WHITE SOFT PARAFFIN [Concomitant]
  7. PHOSPHONEUROS [Concomitant]
  8. GEMZAR [Suspect]
     Route: 065
  9. PROTEIN SUPPLEMENTS [Concomitant]

REACTIONS (1)
  - GASTROINTESTINAL HAEMORRHAGE [None]
